FAERS Safety Report 6136877-1 (Version None)
Quarter: 2009Q1

REPORT INFORMATION
  Report Type: 
  Country: None (occurrence: None)
  Receive Date: 20090330
  Receipt Date: 20090324
  Transmission Date: 20090719
  Serious: Yes (Other)
  Sender: FDA-Public Use
  Company Number: PHHY2009JP07129

PATIENT
  Age: 28 Year
  Sex: Female

DRUGS (4)
  1. NEORAL [Suspect]
     Indication: BEHCET'S SYNDROME
     Dosage: 200 MG DAILY, 3 DF IN THE MORNING AND 1 DF BEFORE DINNER
     Route: 048
     Dates: start: 20070220, end: 20070223
  2. NEORAL [Suspect]
     Dosage: 150 MG, ONCE/SINGLE
     Route: 048
     Dates: start: 20070224, end: 20070227
  3. NEORAL [Suspect]
     Dosage: 200 MG DAILY, 3 DF IN THE MORNING AND 1 DF BEFORE DINNER
     Route: 048
     Dates: start: 20070228, end: 20070331
  4. PREDNISOLONE [Concomitant]
     Indication: BEHCET'S SYNDROME
     Dosage: 30 MG DAILY
     Route: 048

REACTIONS (3)
  - BLOOD CREATININE INCREASED [None]
  - RENAL IMPAIRMENT [None]
  - UVEITIS [None]
